FAERS Safety Report 21624785 (Version 1)
Quarter: 2022Q4

REPORT INFORMATION
  Report Type: Report from Study
  Country: US (occurrence: US)
  Receive Date: 20221122
  Receipt Date: 20221122
  Transmission Date: 20230113
  Serious: No
  Sender: FDA-Public Use
  Company Number: US-Ipsen Biopharmaceuticals, Inc.-2022-30699

PATIENT
  Age: 6 Year
  Sex: Male
  Weight: 12.5 kg

DRUGS (2)
  1. INCRELEX [Suspect]
     Active Substance: MECASERMIN
     Indication: Short stature
     Dosage: 50 IU
     Route: 058
     Dates: start: 20220328, end: 2022
  2. INCRELEX [Suspect]
     Active Substance: MECASERMIN
     Indication: Off label use
     Dosage: 75 IU
     Route: 058
     Dates: start: 2022

REACTIONS (5)
  - Cough [Not Recovered/Not Resolved]
  - Blood iron decreased [Not Recovered/Not Resolved]
  - Emotional disorder [Not Recovered/Not Resolved]
  - Drug ineffective [Unknown]
  - Off label use [Unknown]

NARRATIVE: CASE EVENT DATE: 20220101
